FAERS Safety Report 4677798-0 (Version None)
Quarter: 2005Q2

REPORT INFORMATION
  Report Type: 
  Country: None (occurrence: None)
  Receive Date: 20050531
  Receipt Date: 20050519
  Transmission Date: 20051028
  Serious: Yes (Hospitalization)
  Sender: FDA-Public Use
  Company Number: FR-JNJFOC-20050500399

PATIENT
  Age: 50 Year
  Sex: Female

DRUGS (7)
  1. RISPERDAL [Suspect]
     Indication: DRUG USE FOR UNKNOWN INDICATION
     Route: 049
  2. MEPRONIZINE [Suspect]
     Route: 049
  3. MEPRONIZINE [Suspect]
     Indication: DRUG USE FOR UNKNOWN INDICATION
     Dosage: 1 CP PER DAY
     Route: 049
  4. NOZINAN [Suspect]
     Indication: DRUG USE FOR UNKNOWN INDICATION
     Route: 049
  5. XANAX [Concomitant]
     Dosage: 3 TABS/ DAY
  6. COVERSYL [Concomitant]
  7. FLUDEX [Concomitant]

REACTIONS (8)
  - AGITATION [None]
  - CONSTIPATION [None]
  - CONVULSION [None]
  - DRY MOUTH [None]
  - HYPERTONIA [None]
  - HYPONATRAEMIA [None]
  - LOCKED-IN SYNDROME [None]
  - POLYDIPSIA [None]
